FAERS Safety Report 4919653-4 (Version None)
Quarter: 2006Q1

REPORT INFORMATION
  Report Type: 
  Country: None (occurrence: None)
  Receive Date: 20060216
  Receipt Date: 20050811
  Transmission Date: 20060701
  Serious: Yes (Hospitalization, Other)
  Sender: FDA-Public Use
  Company Number: 2005066852

PATIENT
  Age: 50 Year
  Sex: Female
  Weight: 55 kg

DRUGS (4)
  1. XALATAN [Suspect]
     Indication: GLAUCOMA
     Dosage: DAILY
     Dates: start: 20050427, end: 20050428
  2. TUSOPT (DORZOLAMIDE HYDROCHLORIDE) [Concomitant]
  3. XALCOM (LATANOPROST, TIMOLOL) [Concomitant]
  4. OFETNSIN (TIMOLOL MALEATE) [Concomitant]

REACTIONS (6)
  - BLOOD PRESSURE INCREASED [None]
  - BODY TEMPERATURE INCREASED [None]
  - FEELING ABNORMAL [None]
  - LOSS OF CONSCIOUSNESS [None]
  - SYNCOPE [None]
  - TACHYCARDIA [None]
